FAERS Safety Report 9018564 (Version 1)
Quarter: 2013Q1

REPORT INFORMATION
  Report Type: Spontaneous
  Country: US (occurrence: None)
  Receive Date: 20130111
  Receipt Date: 20130111
  Transmission Date: 20140127
  Serious: No
  Sender: FDA-Public Use
  Company Number: None

PATIENT
  Age: 63 Year
  Sex: Female

DRUGS (1)
  1. ATORVASTATIN [Suspect]
     Indication: HYPERLIPIDAEMIA
     Dates: start: 20110401, end: 20110921

REACTIONS (8)
  - Muscular weakness [None]
  - Myalgia [None]
  - Rash [None]
  - Hepatocellular injury [None]
  - No therapeutic response [None]
  - False positive investigation result [None]
  - Chromaturia [None]
  - Epstein-Barr virus antibody positive [None]
